FAERS Safety Report 7931937-4 (Version None)
Quarter: 2011Q4

REPORT INFORMATION
  Report Type: 
  Country: None (occurrence: None)
  Receive Date: 20111121
  Receipt Date: 20111114
  Transmission Date: 20120403
  Serious: Yes (Hospitalization)
  Sender: FDA-Public Use
  Company Number: CA-ASTRAZENECA-2011SE68821

PATIENT
  Age: 71 Year
  Sex: Female

DRUGS (9)
  1. AMLODIPINE [Concomitant]
     Route: 048
  2. HYDRALAZINE HCL [Concomitant]
     Route: 048
  3. METOPROLOL TARTRATE [Concomitant]
     Route: 048
  4. PIOGLITAZONE [Concomitant]
     Route: 048
  5. NEXIUM [Suspect]
     Route: 048
  6. ATORVASTATIN CALCIUM [Concomitant]
     Route: 048
  7. GABAPENTIN [Concomitant]
     Route: 048
  8. RAMIPRIL [Concomitant]
     Route: 048
  9. ASPIRIN [Concomitant]
     Route: 048

REACTIONS (10)
  - BLOOD PARATHYROID HORMONE INCREASED [None]
  - HYPOAESTHESIA [None]
  - HYPOKALAEMIA [None]
  - DIARRHOEA [None]
  - CHEST PAIN [None]
  - ASTHENIA [None]
  - HYPOMAGNESAEMIA [None]
  - BLOOD PHOSPHORUS DECREASED [None]
  - DYSPNOEA [None]
  - HYPERTENSION [None]
